FAERS Safety Report 9570552 (Version 3)
Quarter: 2013Q4

REPORT INFORMATION
  Report Type: Spontaneous
  Country: US (occurrence: US)
  Receive Date: 20131001
  Receipt Date: 20131031
  Transmission Date: 20140711
  Serious: No
  Sender: FDA-Public Use
  Company Number: US-009507513-1309USA014023

PATIENT
  Age: 55 Year
  Sex: Male
  Weight: 122.45 kg

DRUGS (6)
  1. REBETOL [Suspect]
     Route: 048
  2. PEGINTRON [Suspect]
     Dosage: 120 MICROGRAM/0.5 ML, QW, REDIPEN
     Route: 058
  3. VICTRELIS [Suspect]
     Indication: HEPATITIS C
     Dosage: 4 TABLETS PER 200MG (800 MG), TID
     Route: 048
     Dates: start: 20131011
  4. MAGNESIUM (UNSPECIFIED) [Concomitant]
  5. VITAMINS (UNSPECIFIED) [Concomitant]
  6. CALCIUM (UNSPECIFIED) [Concomitant]

REACTIONS (12)
  - Nervous system disorder [Unknown]
  - Fatigue [Unknown]
  - Nausea [Unknown]
  - Pyrexia [Unknown]
  - Depression [Unknown]
  - Injection site rash [Unknown]
  - Nausea [Not Recovered/Not Resolved]
  - Asthenia [Not Recovered/Not Resolved]
  - Alopecia [Not Recovered/Not Resolved]
  - Depression [Not Recovered/Not Resolved]
  - Melanocytic naevus [Not Recovered/Not Resolved]
  - Abdominal discomfort [Unknown]
